FAERS Safety Report 7970941-7 (Version None)
Quarter: 2011Q4

REPORT INFORMATION
  Report Type: 
  Country: None (occurrence: None)
  Receive Date: 20111122
  Receipt Date: 20110705
  Transmission Date: 20120403
  Serious: No
  Sender: FDA-Public Use
  Company Number: PHHY2011US37567

PATIENT
  Age: 47 Year
  Sex: Female
  Weight: 72.6 kg

DRUGS (8)
  1. AMITRIPTYLINE HCL [Concomitant]
  2. VITAMIN B1 TAB [Concomitant]
  3. VITAMIN B12 [Concomitant]
  4. FAMPRIDINE (FAMPRIDINE) [Concomitant]
  5. GILENYA [Suspect]
     Indication: MULTIPLE SCLEROSIS
     Dosage: 0.5 MG, QD, ORAL
     Route: 048
  6. VITAMIN D [Concomitant]
  7. SEASONALE (ETHINYLESTRADIOL, LEVONORGESTREL) [Concomitant]
  8. HYDROCHLOROTHIAZIDE [Concomitant]

REACTIONS (3)
  - INSOMNIA [None]
  - FATIGUE [None]
  - ALOPECIA [None]
